FAERS Safety Report 9172546 (Version 1)
Quarter: 2012Q4

REPORT INFORMATION
  Report Type: 
  Country: IT (occurrence: IT)
  Receive Date: 20120911
  Receipt Date: 20120911
  Transmission Date: 20130627
  Serious: Yes (Other)
  Sender: FDA-Public Use
  Company Number: CHPA2012IT019559

PATIENT
  Sex: Male

DRUGS (1)
  1. IBUPROFEN [Suspect]
     Indication: HEADACHE
     Dosage: 600 mg, ONCE/SINGLE
     Route: 048
     Dates: start: 20120829, end: 20120829

REACTIONS (3)
  - Auricular swelling [Recovered/Resolved]
  - Rash maculo-papular [Recovered/Resolved]
  - Pruritus generalised [Recovered/Resolved]
